FAERS Safety Report 6346602-7 (Version None)
Quarter: 2009Q3

REPORT INFORMATION
  Report Type: 
  Country: None (occurrence: None)
  Receive Date: 20090831
  Receipt Date: 20090826
  Transmission Date: 20100115
  Serious: Yes (Other)
  Sender: FDA-Public Use
  Company Number: A0803714A

PATIENT
  Age: 76 Year
  Sex: Male

DRUGS (2)
  1. ASPIRIN [Suspect]
     Indication: ANTICOAGULANT THERAPY
     Dosage: 325 MG / AT NIGHT / ORAL
     Route: 048
     Dates: start: 20080101, end: 20090823
  2. QUETIAPINE FUMARATE [Concomitant]

REACTIONS (11)
  - ANAEMIA [None]
  - CHILLS [None]
  - CONDITION AGGRAVATED [None]
  - CONSTIPATION [None]
  - DIARRHOEA [None]
  - EPISTAXIS [None]
  - GASTROINTESTINAL HAEMORRHAGE [None]
  - HAEMORRHAGE [None]
  - PYREXIA [None]
  - RECTAL HAEMORRHAGE [None]
  - SKIN ULCER HAEMORRHAGE [None]
